FAERS Safety Report 16250505 (Version 2)
Quarter: 2019Q2

REPORT INFORMATION
  Report Type: Spontaneous
  Country: DE (occurrence: DE)
  Receive Date: 20190429
  Receipt Date: 20190603
  Transmission Date: 20190711
  Serious: Yes (Death, Hospitalization, Other)
  Sender: FDA-Public Use
  Company Number: DE-MYLANLABS-13X-062-1073763-00

PATIENT
  Age: 83 Year
  Sex: Female
  Weight: 60 kg

DRUGS (18)
  1. TETANOL [Suspect]
     Active Substance: CLOSTRIDIUM TETANI TOXOID ANTIGEN (FORMALDEHYDE INACTIVATED)
     Indication: IMMUNISATION
     Dosage: 1 DOSAGE FORM
     Route: 048
  2. MUTAGRIP S [Suspect]
     Active Substance: INFLUENZA VIRUS VACCINE
     Indication: IMMUNISATION
     Dosage: UNK
     Route: 048
     Dates: start: 20041130
  3. INFLUENZA VACCINE INACT [Suspect]
     Active Substance: INFLUENZA VIRUS VACCINE
     Indication: INFLUENZA IMMUNISATION
     Dosage: 1 DOSAGE FORM
     Route: 048
     Dates: start: 2004, end: 2004
  4. IBUPROFEN. [Suspect]
     Active Substance: IBUPROFEN
     Indication: PRODUCT USED FOR UNKNOWN INDICATION
     Dosage: UNK
     Route: 048
     Dates: end: 20060122
  5. LISINOPRIL                         /00894002/ [Concomitant]
     Active Substance: LISINOPRIL
     Indication: PRODUCT USED FOR UNKNOWN INDICATION
     Dosage: 1 QD
  6. HCT BETA [Concomitant]
     Active Substance: HYDROCHLOROTHIAZIDE
     Indication: PRODUCT USED FOR UNKNOWN INDICATION
     Dosage: 1, QD
     Route: 048
  7. VITAMIN D3 [Concomitant]
     Active Substance: CHOLECALCIFEROL
     Dosage: UNK UNK, QD
     Route: 048
  8. GRIPPEIMPFSTOFF [Suspect]
     Active Substance: INFLUENZA VIRUS VACCINE
     Indication: IMMUNISATION
     Dosage: UNK
     Route: 048
     Dates: start: 20051128
  9. TETANUS TOXOID [Suspect]
     Active Substance: TETANUS TOXOIDS
     Indication: IMMUNISATION
     Dosage: 1 DOSAGE FORM
     Route: 048
  10. CHOLECALCIFEROL [Concomitant]
     Active Substance: CHOLECALCIFEROL
     Indication: PRODUCT USED FOR UNKNOWN INDICATION
     Dosage: 1, QD (1-0-0)
     Route: 048
  11. PANTOPRAZOLE [Concomitant]
     Active Substance: PANTOPRAZOLE
     Indication: PRODUCT USED FOR UNKNOWN INDICATION
     Dosage: 1, QD
     Route: 048
  12. INFLUENZA VACCINE INACT [Suspect]
     Active Substance: INFLUENZA VIRUS VACCINE
     Dosage: 1 DOSAGE FORM
     Dates: start: 20051128, end: 20051128
  13. FOSAMAX [Suspect]
     Active Substance: ALENDRONATE SODIUM
     Indication: PRODUCT USED FOR UNKNOWN INDICATION
     Dosage: UNK
     Route: 048
     Dates: end: 20060121
  14. FOSAMAX [Suspect]
     Active Substance: ALENDRONATE SODIUM
     Dosage: UNK
     Route: 048
     Dates: end: 20060122
  15. TETANUS TOXOID ADSORBED (VACCINE) [Suspect]
     Active Substance: CLOSTRIDIUM TETANI TOXOID ANTIGEN (FORMALDEHYDE INACTIVATED)
     Indication: IMMUNISATION
     Dosage: UNK
     Route: 048
     Dates: end: 20060122
  16. FOSAVANCE [Suspect]
     Active Substance: ALENDRONATE SODIUM\CHOLECALCIFEROL
     Indication: PRODUCT USED FOR UNKNOWN INDICATION
     Dosage: UNK
     Route: 048
     Dates: end: 20060122
  17. BONEFOS [Suspect]
     Active Substance: CLODRONATE DISODIUM
     Indication: OSTEOPOROSIS
     Dosage: QW
     Route: 048
     Dates: start: 20000701, end: 20060122
  18. CALCIUM [Concomitant]
     Active Substance: CALCIUM
     Indication: PRODUCT USED FOR UNKNOWN INDICATION
     Dosage: 1, QD (1-0-0 )

REACTIONS (32)
  - Bone loss [Fatal]
  - Haemarthrosis [Fatal]
  - Incorrect route of product administration [Unknown]
  - Confusional state [Fatal]
  - Ear pain [Fatal]
  - Fungal infection [Fatal]
  - Osteonecrosis of jaw [Fatal]
  - Wound [Fatal]
  - Pneumonia bacterial [Fatal]
  - Diarrhoea [Fatal]
  - Fall [Fatal]
  - Face injury [Fatal]
  - Joint swelling [Fatal]
  - Nausea [Unknown]
  - Vomiting [Fatal]
  - Urinary hesitation [Unknown]
  - Dysphagia [Fatal]
  - Non-cardiac chest pain [Fatal]
  - Oesophageal discomfort [Fatal]
  - Oesophagitis [Fatal]
  - Respiratory distress [Fatal]
  - Concussion [Fatal]
  - Dyspnoea [Fatal]
  - Colitis [Unknown]
  - Breast pain [Fatal]
  - Bronchitis [Fatal]
  - Chest pain [Fatal]
  - Acute respiratory failure [Unknown]
  - Mucous stools [Fatal]
  - Renal cyst [Fatal]
  - Pulmonary embolism [Fatal]
  - Gastrointestinal inflammation [Unknown]

NARRATIVE: CASE EVENT DATE: 2004
